FAERS Safety Report 6125280-6 (Version None)
Quarter: 2009Q1

REPORT INFORMATION
  Report Type: 
  Country: None (occurrence: None)
  Receive Date: 20090319
  Receipt Date: 20090319
  Transmission Date: 20090719
  Serious: Yes (Other)
  Sender: FDA-Public Use
  Company Number: None

PATIENT
  Age: 35 Year
  Sex: Female

DRUGS (1)
  1. PARAGARD T 380A [Suspect]
     Indication: CONTRACEPTION
     Dosage: 015
     Dates: start: 20020101, end: 20090212

REACTIONS (2)
  - COMPLICATION OF DEVICE REMOVAL [None]
  - IUD MIGRATION [None]
